FAERS Safety Report 22516503 (Version 2)
Quarter: 2023Q2

REPORT INFORMATION
  Report Type: Other
  Country: TZ (occurrence: TZ)
  Receive Date: 20230603
  Receipt Date: 20230619
  Transmission Date: 20230721
  Serious: Yes (Congenital Anomaly, Other)
  Sender: FDA-Public Use
  Company Number: TZ-MACLEODS PHARMA EU LTD-MAC2023041602

PATIENT

DRUGS (3)
  1. DOLUTEGRAVIR [Suspect]
     Active Substance: DOLUTEGRAVIR
     Indication: Product used for unknown indication
     Dosage: UNK (NUMBER OF COURSE WAS 1, PRIOR TO CONCEPTION DURING FIRST TRIMESTER AND ONGOING AT DELIVERY FOR
     Route: 064
  2. LAMIVUDINE [Suspect]
     Active Substance: LAMIVUDINE
     Indication: Product used for unknown indication
     Dosage: UNK (NUMBER OF COURSE WAS 1, PRIOR TO CONCEPTION DURING FIRST TRIMESTER AND ONGOING AT DELIVERY FOR
     Route: 064
  3. TENOFOVIR [Suspect]
     Active Substance: TENOFOVIR
     Indication: Product used for unknown indication
     Dosage: UNK (NUMBER OF COURSE WAS 1, PRIOR TO CONCEPTION DURING FIRST TRIMESTER AND ONGOING AT DELIVERY FOR
     Route: 064

REACTIONS (4)
  - Congenital teratoma [Unknown]
  - Arnold-Chiari malformation [Unknown]
  - Atrial septal defect [Unknown]
  - Foetal exposure during pregnancy [Unknown]
